FAERS Safety Report 14723768 (Version 1)
Quarter: 2018Q2

REPORT INFORMATION
  Report Type: Report from Study
  Country: US (occurrence: US)
  Receive Date: 20180405
  Receipt Date: 20180405
  Transmission Date: 20180711
  Serious: Yes (Other)
  Sender: FDA-Public Use
  Company Number: US-TEVA-2018-US-877630

PATIENT
  Age: 71 Year
  Sex: Male

DRUGS (7)
  1. LIPEGFILGRASTIM [Suspect]
     Active Substance: LIPEGFILGRASTIM
     Indication: PLASMA CELL MYELOMA
     Dosage: BEGINNING DAY 10
     Route: 058
  2. DEXAMETHASONE. [Suspect]
     Active Substance: DEXAMETHASONE
     Indication: PLASMA CELL MYELOMA
     Dosage: IN STANDARD FASHION DAYS 4-7; DCEP REGIMEN
     Route: 065
  3. LENALIDOMIDE [Suspect]
     Active Substance: LENALIDOMIDE
     Indication: PLASMA CELL MYELOMA
     Dosage: DAYS 4-7
     Route: 065
  4. CISPLATIN. [Suspect]
     Active Substance: CISPLATIN
     Indication: PLASMA CELL MYELOMA
     Dosage: IN STANDARD FASHION DAYS 4-7; DCEP REGIMEN
     Route: 065
  5. ETOPOSIDE. [Suspect]
     Active Substance: ETOPOSIDE
     Indication: PLASMA CELL MYELOMA
     Dosage: IN STANDARD FASHION DAYS 4-7; DCEP REGIMEN
     Route: 065
  6. CYCLOPHOSPHAMIDE. [Suspect]
     Active Substance: CYCLOPHOSPHAMIDE
     Indication: PLASMA CELL MYELOMA
     Dosage: IN STANDARD FASHION DAYS 4-7; DCEP REGIMEN
     Route: 065
  7. BORTEZOMIB [Suspect]
     Active Substance: BORTEZOMIB
     Indication: PLASMA CELL MYELOMA
     Dosage: ON DAYS 1, 4, 8, AND 11
     Route: 058

REACTIONS (1)
  - Renal failure [Recovered/Resolved]
